FAERS Safety Report 7722990-1 (Version None)
Quarter: 2011Q3

REPORT INFORMATION
  Report Type: 
  Country: None (occurrence: None)
  Receive Date: 20110901
  Receipt Date: 20110819
  Transmission Date: 20111222
  Serious: Yes (Other)
  Sender: FDA-Public Use
  Company Number: US-EISAI INC-E7272-00112-CLI-US

PATIENT
  Sex: Female

DRUGS (10)
  1. ASPIRIN [Concomitant]
     Indication: HYPERTENSION
     Route: 048
     Dates: start: 19850101
  2. PROTONIX [Concomitant]
     Route: 048
     Dates: start: 20060101
  3. ZETIA [Concomitant]
     Route: 048
     Dates: start: 20090101
  4. ONTAK [Suspect]
     Route: 041
     Dates: start: 20100713
  5. TOPROL-XL [Concomitant]
     Indication: HYPERTENSION
  6. DULCOLOX [Concomitant]
     Indication: CONSTIPATION
     Route: 048
     Dates: start: 19900101
  7. PROMETHAZINE [Concomitant]
     Route: 048
     Dates: start: 20100719
  8. NAPROXEN (ALEVE) [Concomitant]
     Route: 048
     Dates: start: 20101012
  9. RAMIPRIL [Concomitant]
     Indication: HYPERTENSION
     Route: 048
  10. TOPROL-XL [Concomitant]
     Indication: CORONARY ARTERY DISEASE
     Route: 048
     Dates: start: 20060101

REACTIONS (1)
  - NEOPLASM MALIGNANT [None]
